FAERS Safety Report 23500208 (Version 1)
Quarter: 2024Q1

REPORT INFORMATION
  Report Type: Spontaneous
  Country: US (occurrence: US)
  Receive Date: 20240208
  Receipt Date: 20240208
  Transmission Date: 20240409
  Serious: Yes (Other)
  Sender: FDA-Public Use
  Company Number: US-SA-SAC20240206000745

PATIENT
  Age: 55 Year
  Sex: Female

DRUGS (1)
  1. DUPIXENT [Suspect]
     Active Substance: DUPILUMAB
     Indication: Eosinophilic oesophagitis
     Dosage: 300 MG, QW
     Route: 058
     Dates: start: 20230825

REACTIONS (5)
  - Choking [Unknown]
  - Aphthous ulcer [Recovered/Resolved]
  - Dyspnoea [Unknown]
  - Productive cough [Unknown]
  - Oral herpes [Recovered/Resolved]
